FAERS Safety Report 4594969-2 (Version None)
Quarter: 2005Q1

REPORT INFORMATION
  Report Type: 
  Country: None (occurrence: None)
  Receive Date: 20050224
  Receipt Date: 20030701
  Transmission Date: 20050727
  Serious: Yes (Life-Threatening, Other)
  Sender: FDA-Public Use
  Company Number: GXKR2003GB00636

PATIENT
  Age: 34 Year
  Sex: Female

DRUGS (1)
  1. TRIMETHOPRIM [Suspect]
     Dosage: ORAL
     Route: 048
     Dates: start: 20030623

REACTIONS (5)
  - CHEST DISCOMFORT [None]
  - FEELING ABNORMAL [None]
  - FEELING HOT [None]
  - HYPERHIDROSIS [None]
  - PYREXIA [None]
